FAERS Safety Report 23869254 (Version 1)
Quarter: 2024Q2

REPORT INFORMATION
  Report Type: Spontaneous
  Country: US (occurrence: None)
  Receive Date: 20240517
  Receipt Date: 20240517
  Transmission Date: 20240715
  Serious: Yes (Hospitalization)
  Sender: FDA-Public Use
  Company Number: None

PATIENT
  Age: 77 Year
  Sex: Male
  Weight: 66.9 kg

DRUGS (1)
  1. XELODA [Suspect]
     Active Substance: CAPECITABINE
     Dates: end: 20240426

REACTIONS (9)
  - Suicidal ideation [None]
  - Pollakiuria [None]
  - Poor quality sleep [None]
  - Decreased appetite [None]
  - Feeling of despair [None]
  - Anxiety [None]
  - Asthenia [None]
  - Confusional state [None]
  - Cognitive disorder [None]

NARRATIVE: CASE EVENT DATE: 20240428
